FAERS Safety Report 10251757 (Version 1)
Quarter: 2014Q2

REPORT INFORMATION
  Report Type: Spontaneous
  Country: US (occurrence: US)
  Receive Date: 20140623
  Receipt Date: 20140623
  Transmission Date: 20141212
  Serious: No
  Sender: FDA-Public Use
  Company Number: US-BIOGENIDEC-2014BI057621

PATIENT
  Age: 29 Year
  Sex: Male

DRUGS (1)
  1. TECFIDERA [Suspect]
     Indication: MULTIPLE SCLEROSIS

REACTIONS (5)
  - Aphagia [Not Recovered/Not Resolved]
  - Chest discomfort [Unknown]
  - Nausea [Unknown]
  - Vomiting [Unknown]
  - Dyspepsia [Not Recovered/Not Resolved]
